FAERS Safety Report 4708220-3 (Version None)
Quarter: 2005Q3

REPORT INFORMATION
  Report Type: 
  Country: None (occurrence: None)
  Receive Date: 20050707
  Receipt Date: 20050627
  Transmission Date: 20060218
  Serious: Yes (Hospitalization)
  Sender: FDA-Public Use
  Company Number: ES-JNJFOC-20050607103

PATIENT
  Sex: Female
  Weight: 61 kg

DRUGS (10)
  1. DURAGESIC-100 [Suspect]
     Indication: CANCER PAIN
     Route: 062
  2. XELODA [Concomitant]
     Route: 065
  3. VINORELBINE [Concomitant]
     Route: 065
  4. NOLOTIL [Concomitant]
     Route: 065
  5. NOLOTIL [Concomitant]
     Route: 065
  6. REXER [Concomitant]
     Dosage: HALF A NIGHT.
     Route: 065
  7. TORADOL [Concomitant]
     Route: 065
  8. MORPHIC CLORURE [Concomitant]
     Route: 065
  9. NEOBRUFEN/SERACTIL [Concomitant]
     Route: 065
  10. DEZACORT [Concomitant]
     Route: 065

REACTIONS (1)
  - LEUKOCYTOCLASTIC VASCULITIS [None]
